FAERS Safety Report 6155005-X (Version None)
Quarter: 2009Q2

REPORT INFORMATION
  Report Type: 
  Country: None (occurrence: None)
  Receive Date: 20090414
  Receipt Date: 20090407
  Transmission Date: 20091009
  Serious: Yes (Death)
  Sender: FDA-Public Use
  Company Number: US-GENENTECH-280895

PATIENT
  Sex: Male

DRUGS (1)
  1. RITUXAN [Suspect]
     Indication: RHEUMATOID ARTHRITIS
     Dosage: UNK
     Dates: start: 20081101

REACTIONS (4)
  - DEATH [None]
  - HIP SURGERY [None]
  - PNEUMONIA [None]
  - SUBDURAL HAEMATOMA [None]
